FAERS Safety Report 17680315 (Version 2)
Quarter: 2020Q2

REPORT INFORMATION
  Report Type: Spontaneous
  Country: US (occurrence: US)
  Receive Date: 20200417
  Receipt Date: 20200602
  Transmission Date: 20200714
  Serious: Yes (Other)
  Sender: FDA-Public Use
  Company Number: US-BIOGEN-2020BI00864934

PATIENT
  Sex: Male

DRUGS (1)
  1. TECFIDERA [Suspect]
     Active Substance: DIMETHYL FUMARATE
     Indication: MULTIPLE SCLEROSIS
     Route: 065
     Dates: start: 20200331, end: 20200416

REACTIONS (6)
  - Pruritus [Unknown]
  - Joint swelling [Unknown]
  - Circumoral swelling [Recovered/Resolved]
  - Respiratory arrest [Unknown]
  - Urticaria [Unknown]
  - Rash [Unknown]
